FAERS Safety Report 8890769 (Version 1)
Quarter: 2012Q4

REPORT INFORMATION
  Report Type: Report from Study
  Country: JP (occurrence: JP)
  Receive Date: 20121107
  Receipt Date: 20121107
  Transmission Date: 20130627
  Serious: Yes (Hospitalization)
  Sender: FDA-Public Use
  Company Number: JP-VERTEX PHARMACEUTICAL INC.-2012-024082

PATIENT
  Age: 55 Year
  Sex: Male

DRUGS (11)
  1. TELAPREVIR [Suspect]
     Indication: CHRONIC HEPATITIS C
     Dosage: 2250 mg, qd
     Route: 048
     Dates: start: 20120802, end: 20120906
  2. TELAPREVIR [Suspect]
     Dosage: 1500 mg, qd
     Route: 048
     Dates: start: 20120907, end: 20121019
  3. REBETOL [Suspect]
     Indication: CHRONIC HEPATITIS C
     Dosage: 800 mg, qd
     Route: 048
     Dates: start: 20120802, end: 20120823
  4. REBETOL [Suspect]
     Dosage: 600 mg, qd
     Route: 048
     Dates: start: 20120824, end: 20120913
  5. REBETOL [Suspect]
     Dosage: 400 mg, qd
     Route: 048
     Dates: start: 20120914, end: 20121019
  6. PEGINTERFERON ALFA-2B [Suspect]
     Indication: CHRONIC HEPATITIS C
     Dosage: 100 ?g/kg, UNK
     Route: 058
     Dates: start: 20120802
  7. PREDONINE                          /00016201/ [Concomitant]
     Dosage: 10 mg, qd
     Route: 048
     Dates: start: 20120802, end: 20120808
  8. PREDONINE                          /00016201/ [Concomitant]
     Dosage: 5 mg, qd
     Route: 048
     Dates: start: 20120809, end: 20121023
  9. PREDONINE                          /00016201/ [Concomitant]
     Dosage: 15 mg, qd
     Route: 048
     Dates: start: 20121024
  10. LANSOPRAZOLE [Concomitant]
     Dosage: 15 mg, qd
     Route: 048
     Dates: start: 20120802
  11. ALOSITOL [Concomitant]
     Dosage: 200 mg, qd
     Route: 048

REACTIONS (6)
  - Malaise [Recovered/Resolved]
  - Hyperuricaemia [None]
  - Rash [None]
  - Pruritus [None]
  - Anaemia [None]
  - Renal impairment [None]
